FAERS Safety Report 5865885-0 (Version None)
Quarter: 2008Q3

REPORT INFORMATION
  Report Type: 
  Country: None (occurrence: None)
  Receive Date: 20080829
  Receipt Date: 20080820
  Transmission Date: 20090109
  Serious: Yes (Other)
  Sender: FDA-Public Use
  Company Number: US-PFIZER INC-2007094381

PATIENT
  Sex: Female
  Weight: 70 kg

DRUGS (6)
  1. DILANTIN [Suspect]
     Indication: GRAND MAL CONVULSION
  2. DILANTIN [Suspect]
  3. PHENYTOIN [Suspect]
  4. PHENOBARBITAL TAB [Concomitant]
     Indication: GRAND MAL CONVULSION
  5. VITAMIN TAB [Concomitant]
  6. CALCIUM [Concomitant]

REACTIONS (28)
  - ACCOMMODATION DISORDER [None]
  - ANOREXIA [None]
  - ANTICONVULSANT DRUG LEVEL DECREASED [None]
  - ANTICONVULSANT DRUG LEVEL INCREASED [None]
  - ASTHENIA [None]
  - AURA [None]
  - BALANCE DISORDER [None]
  - COLITIS [None]
  - CONVULSION [None]
  - DIZZINESS [None]
  - DRUG TOXICITY [None]
  - DYSGEUSIA [None]
  - FATIGUE [None]
  - FEELING ABNORMAL [None]
  - HEADACHE [None]
  - HYPERMETABOLISM [None]
  - HYPOAESTHESIA [None]
  - IMPAIRED DRIVING ABILITY [None]
  - IMPAIRED WORK ABILITY [None]
  - MALAISE [None]
  - MEDICATION ERROR [None]
  - MIGRAINE [None]
  - NAUSEA [None]
  - PAIN [None]
  - PARAESTHESIA [None]
  - THINKING ABNORMAL [None]
  - VISION BLURRED [None]
  - WEIGHT DECREASED [None]
